FAERS Safety Report 8110105-X (Version None)
Quarter: 2012Q1

REPORT INFORMATION
  Report Type: 
  Country: None (occurrence: None)
  Receive Date: 20120202
  Receipt Date: 20120124
  Transmission Date: 20120608
  Serious: Yes (Other)
  Sender: FDA-Public Use
  Company Number: US-AMGEN-USASP2012004962

PATIENT
  Age: 26 Year
  Sex: Female

DRUGS (2)
  1. ENBREL [Suspect]
     Indication: RHEUMATOID ARTHRITIS
     Dosage: 50 MG, QWK
     Dates: start: 20050501
  2. TREXALL [Concomitant]
     Dosage: 1 MG, UNK
     Dates: start: 20020101

REACTIONS (3)
  - GRAND MAL CONVULSION [None]
  - SINUSITIS [None]
  - BLOOD CHOLESTEROL INCREASED [None]
